FAERS Safety Report 11897974 (Version 2)
Quarter: 2016Q1

REPORT INFORMATION
  Report Type: Spontaneous
  Country: JP (occurrence: JP)
  Receive Date: 20160108
  Receipt Date: 20160128
  Transmission Date: 20160526
  Serious: Yes (Other)
  Sender: FDA-Public Use
  Company Number: JP-MYLANLABS-2016M1000381

PATIENT

DRUGS (3)
  1. DOXORUBICIN [Suspect]
     Active Substance: DOXORUBICIN
     Dosage: 56 MG/M2; TRIWEEKLY; TOTAL EIGHT CYCLES
     Route: 065
  2. DOXORUBICIN [Suspect]
     Active Substance: DOXORUBICIN
     Indication: STEWART-TREVES SYNDROME
     Dosage: 75 MG/M2; TRIWEEKLY; TOTAL EIGHT CYCLES
     Route: 065
  3. DOCETAXEL. [Suspect]
     Active Substance: DOCETAXEL
     Indication: STEWART-TREVES SYNDROME
     Dosage: 60 MG/M2; TRIWEEKLY; TOTAL SEVEN CYCLES
     Route: 065

REACTIONS (1)
  - Anaphylactic shock [Unknown]
